FAERS Safety Report 17334624 (Version 1)
Quarter: 2020Q1

REPORT INFORMATION
  Report Type: Spontaneous
  Country: TR (occurrence: TR)
  Receive Date: 20200128
  Receipt Date: 20200128
  Transmission Date: 20200409
  Serious: Yes (Other)
  Sender: FDA-Public Use
  Company Number: TR-GE HEALTHCARE LIFE SCIENCES-2020CSU000313

PATIENT

DRUGS (4)
  1. CLARISCAN [Suspect]
     Active Substance: GADOTERATE MEGLUMINE
     Indication: ANGIOGRAM
     Dosage: 6 ML, SINGLE
     Route: 042
     Dates: start: 20200116, end: 20200116
  2. CLARISCAN [Suspect]
     Active Substance: GADOTERATE MEGLUMINE
     Indication: ABDOMINAL PAIN
  3. CLARISCAN [Suspect]
     Active Substance: GADOTERATE MEGLUMINE
     Indication: CONSTIPATION
  4. CLARISCAN [Suspect]
     Active Substance: GADOTERATE MEGLUMINE
     Indication: CONGENITAL ECTOPIC PANCREAS

REACTIONS (4)
  - Syncope [Recovered/Resolved]
  - Nausea [Recovered/Resolved]
  - Strabismus [Recovered/Resolved]
  - Rash [Recovered/Resolved]

NARRATIVE: CASE EVENT DATE: 20200116
